FAERS Safety Report 7468684-1 (Version None)
Quarter: 2011Q2

REPORT INFORMATION
  Report Type: 
  Country: None (occurrence: None)
  Receive Date: 20110510
  Receipt Date: 20110502
  Transmission Date: 20111010
  Serious: No
  Sender: FDA-Public Use
  Company Number: US-BIOGENIDEC-2010BI015559

PATIENT
  Sex: Male

DRUGS (1)
  1. TYSABRI [Suspect]
     Indication: MULTIPLE SCLEROSIS
     Route: 042
     Dates: start: 20091201

REACTIONS (10)
  - MULTIPLE SCLEROSIS [None]
  - SENSORY LOSS [None]
  - VESSEL PUNCTURE SITE HAEMORRHAGE [None]
  - VESSEL PERFORATION [None]
  - INSOMNIA [None]
  - PLATELET COUNT INCREASED [None]
  - BLEPHAROSPASM [None]
  - MUSCLE TWITCHING [None]
  - MUSCLE SPASMS [None]
  - FATIGUE [None]
